FAERS Safety Report 18145958 (Version 1)
Quarter: 2020Q3

REPORT INFORMATION
  Report Type: Spontaneous
  Country: US (occurrence: US)
  Receive Date: 20200813
  Receipt Date: 20200813
  Transmission Date: 20201103
  Serious: No
  Sender: FDA-Public Use
  Company Number: US-PFIZER INC-2020279103

PATIENT
  Age: 10 Year
  Sex: Male

DRUGS (2)
  1. GENOTROPIN [Suspect]
     Active Substance: SOMATROPIN
     Indication: GROWTH HORMONE DEFICIENCY
     Dosage: 1.6 MG (5 DAYS A WEEK)
     Dates: start: 20190506
  2. GENOTROPIN [Suspect]
     Active Substance: SOMATROPIN
     Dosage: UNK (1.6 INJECT WITH NEEDLE MONDAY THROUGH FRIDAY ALTERNATE BETWEEN EACH THIGH AND BUTT CHEEK)

REACTIONS (2)
  - Headache [Unknown]
  - Product dose omission issue [Unknown]
